FAERS Safety Report 5876654-X (Version None)
Quarter: 2008Q3

REPORT INFORMATION
  Report Type: 
  Country: None (occurrence: None)
  Receive Date: 20080908
  Receipt Date: 20080908
  Transmission Date: 20090109
  Serious: Yes (Hospitalization)
  Sender: FDA-Public Use
  Company Number: None

PATIENT
  Sex: Female
  Weight: 80.7403 kg

DRUGS (2)
  1. SEROQUEL [Suspect]
     Indication: DEPRESSION
     Dosage: 800MG QHS PO
     Route: 048
     Dates: start: 20080701, end: 20080901
  2. DIFLUCAN [Suspect]
     Indication: FUNGAL SKIN INFECTION
     Dosage: 400MG QDAY PO
     Route: 048
     Dates: start: 20080804, end: 20080811

REACTIONS (3)
  - DRUG LEVEL FLUCTUATING [None]
  - INTERNATIONAL NORMALISED RATIO INCREASED [None]
  - SEDATION [None]
